FAERS Safety Report 20095317 (Version 2)
Quarter: 2021Q4

REPORT INFORMATION
  Report Type: Spontaneous
  Country: JP (occurrence: JP)
  Receive Date: 20211122
  Receipt Date: 20211206
  Transmission Date: 20220303
  Serious: Yes (Hospitalization)
  Sender: FDA-Public Use
  Company Number: JP-CHUGAI-2021026838

PATIENT
  Age: 81 Year
  Sex: Male
  Weight: 58 kg

DRUGS (12)
  1. TECENTRIQ [Suspect]
     Active Substance: ATEZOLIZUMAB
     Indication: Hepatic cancer
     Route: 041
     Dates: start: 20210729, end: 20210729
  2. AVASTIN [Suspect]
     Active Substance: BEVACIZUMAB
     Indication: Hepatic cancer
     Route: 041
     Dates: start: 20210729, end: 20210729
  3. AVASTIN [Suspect]
     Active Substance: BEVACIZUMAB
     Route: 041
     Dates: start: 20211020
  4. LIMAPROST [Concomitant]
     Active Substance: LIMAPROST
     Route: 048
  5. ORYCTOLAGUS CUNICULUS SKIN [Concomitant]
     Active Substance: ORYCTOLAGUS CUNICULUS SKIN
     Route: 048
  6. CYMBALTA [Concomitant]
     Active Substance: DULOXETINE HYDROCHLORIDE
     Route: 048
  7. MIROGABALIN BESYLATE [Concomitant]
     Active Substance: MIROGABALIN BESYLATE
     Route: 048
  8. AMLODIPINE BESYLATE\ATORVASTATIN CALCIUM [Concomitant]
     Active Substance: AMLODIPINE BESYLATE\ATORVASTATIN CALCIUM
     Route: 048
  9. HYDROCHLOROTHIAZIDE\LOSARTAN POTASSIUM [Concomitant]
     Active Substance: HYDROCHLOROTHIAZIDE\LOSARTAN POTASSIUM
     Route: 048
  10. EMPAGLIFLOZIN\LINAGLIPTIN [Concomitant]
     Active Substance: EMPAGLIFLOZIN\LINAGLIPTIN
     Route: 048
  11. ASPIRIN\LANSOPRAZOLE [Concomitant]
     Active Substance: ASPIRIN\LANSOPRAZOLE
     Route: 048
  12. ELOBIXIBAT [Concomitant]
     Active Substance: ELOBIXIBAT
     Route: 048

REACTIONS (3)
  - Hepatic function abnormal [Recovered/Resolved]
  - Blood pressure decreased [Unknown]
  - Platelet count decreased [Unknown]

NARRATIVE: CASE EVENT DATE: 20210813
